FAERS Safety Report 6231769-1 (Version None)
Quarter: 2009Q2

REPORT INFORMATION
  Report Type: 
  Country: None (occurrence: None)
  Receive Date: 20090616
  Receipt Date: 20090603
  Transmission Date: 20091009
  Serious: Yes (Hospitalization)
  Sender: FDA-Public Use
  Company Number: PHHY2009ES21990

PATIENT
  Sex: Female

DRUGS (1)
  1. LIPOSIT PROLIB [Suspect]
     Indication: HYPERCHOLESTEROLAEMIA
     Dosage: 80MG PER DAY
     Route: 048

REACTIONS (2)
  - BILE DUCT STENOSIS [None]
  - HEPATITIS CHOLESTATIC [None]
